FAERS Safety Report 7004165-7 (Version None)
Quarter: 2010Q3

REPORT INFORMATION
  Report Type: 
  Country: None (occurrence: None)
  Receive Date: 20100920
  Receipt Date: 20100204
  Transmission Date: 20110219
  Serious: No
  Sender: FDA-Public Use
  Company Number: US-WYE-H13484210

PATIENT
  Age: 75 Year
  Sex: Female

DRUGS (11)
  1. PRISTIQ [Suspect]
     Indication: DEPRESSION
     Route: 048
     Dates: start: 20100114
  2. ALPRAZOLAM [Concomitant]
  3. METFORMIN [Concomitant]
  4. LISINOPRIL [Concomitant]
  5. SIMVASTATIN [Concomitant]
  6. ACETYLSALICYLIC ACID [Concomitant]
  7. FAMOTIDINE [Concomitant]
  8. VITAMIN TAB [Concomitant]
  9. CALCIUM CARBONATE [Concomitant]
  10. CLONAZEPAM [Concomitant]
  11. AMLODIPINE [Concomitant]

REACTIONS (4)
  - CONDITION AGGRAVATED [None]
  - CRYING [None]
  - DRUG INEFFECTIVE [None]
  - TREMOR [None]
